FAERS Safety Report 25797453 (Version 1)
Quarter: 2025Q3

REPORT INFORMATION
  Report Type: Spontaneous
  Country: CO (occurrence: CO)
  Receive Date: 20250912
  Receipt Date: 20250912
  Transmission Date: 20251021
  Serious: Yes (Death, Other)
  Sender: BAYER HEALTHCARE PHARMACEUTICALS INC.
  Company Number: CO-BAYER-2025A120671

PATIENT
  Age: 72 Year
  Sex: Female

DRUGS (1)
  1. ULTRAVIST [Suspect]
     Active Substance: IOPROMIDE
     Indication: Computerised tomogram abdomen
     Route: 042
     Dates: start: 20250903, end: 20250903

REACTIONS (10)
  - Cardiogenic shock [Fatal]
  - Acute myocardial infarction [Fatal]
  - Nausea [None]
  - Vomiting [None]
  - Blood pressure abnormal [None]
  - Respiratory distress [None]
  - Somnolence [None]
  - Cyanosis [None]
  - Salivary hypersecretion [None]
  - Loss of consciousness [None]

NARRATIVE: CASE EVENT DATE: 20250903
